FAERS Safety Report 5827101-5 (Version None)
Quarter: 2008Q3

REPORT INFORMATION
  Report Type: 
  Country: None (occurrence: None)
  Receive Date: 20080729
  Receipt Date: 20080729
  Transmission Date: 20090109
  Serious: Yes (Disabling)
  Sender: FDA-Public Use
  Company Number: None

PATIENT
  Sex: Male
  Weight: 68.5 kg

DRUGS (28)
  1. FLUCONAZOLE [Suspect]
     Indication: FUNGAL INFECTION
     Dosage: 400MG Q24HRS IV DRIP
     Route: 041
     Dates: start: 20080723, end: 20080724
  2. FLUCONAZOLE [Suspect]
     Indication: PNEUMONIA
     Dosage: 400MG Q24HRS IV DRIP
     Route: 041
     Dates: start: 20080723, end: 20080724
  3. AMIODARONE HCL [Suspect]
     Indication: ATRIAL FIBRILLATION
     Dosage: 150MG Q12HRS IV DRIP
     Route: 041
     Dates: start: 20080721, end: 20080728
  4. APAP W/ CODEINE [Concomitant]
  5. APA [Concomitant]
  6. ASPIRIN [Concomitant]
  7. BISACODYL [Concomitant]
  8. DOCUSATE [Concomitant]
  9. ESOMEPRAZOLE [Concomitant]
  10. HEPARIN [Concomitant]
  11. HYDROMORPHONE HCL [Concomitant]
  12. LABETALOL HCL [Concomitant]
  13. LORAZEPAM [Concomitant]
  14. MILK OF MAGNESIA [Concomitant]
  15. MEGESTROL ACETATE [Concomitant]
  16. NALBUPHINE [Concomitant]
  17. NALOXONE [Concomitant]
  18. NYSTATIN [Concomitant]
  19. ONDANSETRON [Concomitant]
  20. OXYCODONE HCL [Concomitant]
  21. PROCHLORPERAZINE [Concomitant]
  22. POTASSIUM CHLORIDE [Concomitant]
  23. DARVOCET [Concomitant]
  24. TEMAZEPAM [Concomitant]
  25. CEFEPIME [Concomitant]
  26. FENTANYL-100 [Concomitant]
  27. VANCOMYCIN HCL [Concomitant]
  28. ALBUTEROL [Concomitant]

REACTIONS (1)
  - ELECTROCARDIOGRAM QT PROLONGED [None]
